FAERS Safety Report 4947324-7 (Version None)
Quarter: 2006Q1

REPORT INFORMATION
  Report Type: 
  Country: None (occurrence: None)
  Receive Date: 20060317
  Receipt Date: 20060309
  Transmission Date: 20060701
  Serious: Yes (Hospitalization)
  Sender: FDA-Public Use
  Company Number: US-BOEHRINGER INGELHEIM PHARMACEUTICALS, INC.-2006-BP-02697BP

PATIENT
  Age: 55 Year
  Sex: Male

DRUGS (3)
  1. MOBIC [Suspect]
     Indication: OSTEOARTHRITIS
     Route: 048
     Dates: start: 20050811, end: 20060223
  2. LOTREL [Concomitant]
     Route: 048
     Dates: start: 20050811
  3. ZETIA [Concomitant]
     Indication: BLOOD CHOLESTEROL INCREASED
     Route: 048
     Dates: start: 20050811

REACTIONS (2)
  - OESOPHAGEAL INJURY [None]
  - ULCER HAEMORRHAGE [None]
